FAERS Safety Report 22608409 (Version 1)
Quarter: 2023Q2

REPORT INFORMATION
  Report Type: Spontaneous
  Country: CH (occurrence: CH)
  Receive Date: 20230616
  Receipt Date: 20230616
  Transmission Date: 20230722
  Serious: Yes (Other)
  Sender: FDA-Public Use
  Company Number: CH-ASPEN-GLO2023CH003733

PATIENT

DRUGS (3)
  1. DECA-DURABOLIN [Suspect]
     Active Substance: NANDROLONE DECANOATE
     Indication: Rheumatoid arthritis
     Dosage: UNK UNK, 1 DOSE 3 WEEKS (EVERY 3 WEEKS)
     Route: 030
  2. DECA-DURABOLIN [Suspect]
     Active Substance: NANDROLONE DECANOATE
     Indication: Osteoporosis
  3. ELIQUIS [Concomitant]
     Active Substance: APIXABAN
     Indication: Anticoagulant therapy
     Dosage: UNK
     Route: 065

REACTIONS (2)
  - Off label use [Unknown]
  - Atrial fibrillation [Unknown]
